FAERS Safety Report 14300754 (Version 2)
Quarter: 2018Q1

REPORT INFORMATION
  Report Type: Spontaneous
  Country: US (occurrence: US)
  Receive Date: 20171219
  Receipt Date: 20180104
  Transmission Date: 20180509
  Serious: No
  Sender: FDA-Public Use
  Company Number: US-ASTRAZENECA-2017SF28661

PATIENT
  Age: 25609 Day
  Sex: Male
  Weight: 72.6 kg

DRUGS (3)
  1. MOVANTIK [Suspect]
     Active Substance: NALOXEGOL OXALATE
     Indication: CONSTIPATION
     Route: 048
     Dates: start: 20171213
  2. XANAX [Concomitant]
     Active Substance: ALPRAZOLAM
     Indication: ANXIETY
     Route: 048
     Dates: start: 2012
  3. FENTANYL. [Concomitant]
     Active Substance: FENTANYL
     Indication: MIGRAINE
     Route: 062
     Dates: start: 2015

REACTIONS (7)
  - Malaise [Recovered/Resolved]
  - Loss of personal independence in daily activities [Unknown]
  - Asthenia [Recovered/Resolved]
  - Migraine [Not Recovered/Not Resolved]
  - Nausea [Recovered/Resolved]
  - Dizziness [Recovered/Resolved]
  - Abdominal pain [Unknown]

NARRATIVE: CASE EVENT DATE: 20171213
